FAERS Safety Report 8301629-0 (Version None)
Quarter: 2012Q2

REPORT INFORMATION
  Report Type: 
  Country: None (occurrence: None)
  Receive Date: 20120420
  Receipt Date: 20120406
  Transmission Date: 20120825
  Serious: Yes (Hospitalization)
  Sender: FDA-Public Use
  Company Number: US-ROCHE-1043951

PATIENT
  Sex: Female
  Weight: 100.68 kg

DRUGS (12)
  1. PREDNISONE [Suspect]
     Indication: DIFFUSE LARGE B-CELL LYMPHOMA
     Dates: start: 20111114, end: 20120120
  2. PREDNISONE [Suspect]
     Dates: end: 20120219
  3. MABTHERA [Suspect]
     Dosage: CYCLIC
     Dates: end: 20120215
  4. BORTEZOMIB [Suspect]
     Indication: DIFFUSE LARGE B-CELL LYMPHOMA
     Dates: start: 20111114, end: 20111227
  5. CYCLOPHOSPHAMIDE [Suspect]
     Dates: end: 20120215
  6. MABTHERA [Suspect]
     Indication: DIFFUSE LARGE B-CELL LYMPHOMA
     Dates: start: 20111114, end: 20120116
  7. VINCRISTINE [Suspect]
     Indication: DIFFUSE LARGE B-CELL LYMPHOMA
     Dates: start: 20111114, end: 20120120
  8. BORTEZOMIB [Suspect]
     Dates: end: 20111230
  9. DOXORUBICIN HCL [Suspect]
     Dates: end: 20120215
  10. CYCLOPHOSPHAMIDE [Suspect]
     Indication: DIFFUSE LARGE B-CELL LYMPHOMA
     Dates: start: 20111114, end: 20120116
  11. DOXORUBICIN HCL [Suspect]
     Indication: DIFFUSE LARGE B-CELL LYMPHOMA
     Dates: start: 20111114, end: 20120116
  12. VINCRISTINE [Suspect]
     Dates: end: 20120215

REACTIONS (3)
  - ASTHENIA [None]
  - PYREXIA [None]
  - PULMONARY EMBOLISM [None]
